FAERS Safety Report 5869225-2 (Version None)
Quarter: 2008Q3

REPORT INFORMATION
  Report Type: 
  Country: None (occurrence: None)
  Receive Date: 20080903
  Receipt Date: 20080822
  Transmission Date: 20090109
  Serious: Yes (Hospitalization, Other)
  Sender: FDA-Public Use
  Company Number: US-ELI_LILLY_AND_COMPANY-US200808005978

PATIENT
  Sex: Female
  Weight: 74.83 kg

DRUGS (7)
  1. BYETTA [Suspect]
     Indication: TYPE 2 DIABETES MELLITUS
     Dosage: 5 UG, 2/D
     Route: 058
     Dates: start: 20060101
  2. BYETTA [Suspect]
     Dosage: 10 UG, 2/D
     Route: 058
  3. BYETTA [Suspect]
     Dosage: 5 UG, 2/D
     Route: 058
     Dates: end: 20080819
  4. GLUCOPHAGE [Concomitant]
     Indication: TYPE 2 DIABETES MELLITUS
     Dosage: UNK, UNKNOWN
     Route: 048
  5. VYTORIN [Concomitant]
     Dosage: UNK, UNKNOWN
     Route: 048
     Dates: start: 20080701
  6. ZETIA [Concomitant]
     Dosage: UNK, UNKNOWN
     Route: 048
     Dates: end: 20080701
  7. XANAX [Concomitant]
     Dosage: UNK, AS NEEDED
     Route: 048

REACTIONS (7)
  - ABDOMINAL PAIN UPPER [None]
  - ABDOMINAL TENDERNESS [None]
  - BLOOD TRIGLYCERIDES INCREASED [None]
  - INTESTINAL OBSTRUCTION [None]
  - PAIN [None]
  - PANCREATITIS [None]
  - VOMITING [None]
